FAERS Safety Report 15679791 (Version 2)
Quarter: 2018Q4

REPORT INFORMATION
  Report Type: Spontaneous
  Country: US (occurrence: US)
  Receive Date: 20181203
  Receipt Date: 20181213
  Transmission Date: 20190205
  Serious: No
  Sender: FDA-Public Use
  Company Number: US-AMGEN-USASP2018171612

PATIENT
  Age: 41 Year
  Sex: Female
  Weight: 113.4 kg

DRUGS (5)
  1. NEULASTA [Suspect]
     Active Substance: PEGFILGRASTIM
     Indication: PRODUCT USED FOR UNKNOWN INDICATION
     Dosage: UNK
     Route: 065
  2. HERCEPTIN [Concomitant]
     Active Substance: TRASTUZUMAB
     Dosage: UNK
  3. CARBOPLATIN. [Concomitant]
     Active Substance: CARBOPLATIN
     Dosage: UNK
  4. PERJETA [Concomitant]
     Active Substance: PERTUZUMAB
     Dosage: UNK
  5. DOCETAXEL. [Concomitant]
     Active Substance: DOCETAXEL
     Dosage: UNK

REACTIONS (2)
  - Product storage error [Unknown]
  - Intercepted medication error [Unknown]

NARRATIVE: CASE EVENT DATE: 201811
